FAERS Safety Report 22048430 (Version 3)
Quarter: 2023Q4

REPORT INFORMATION
  Report Type: Spontaneous
  Country: CA (occurrence: CA)
  Receive Date: 20230301
  Receipt Date: 20231103
  Transmission Date: 20240110
  Serious: Yes (Other)
  Sender: FDA-Public Use
  Company Number: CA-TAKEDA-2023TUS021281

PATIENT
  Age: 52 Year
  Sex: Female

DRUGS (7)
  1. HUMAN IMMUNOGLOBULIN G [Suspect]
     Active Substance: HUMAN IMMUNOGLOBULIN G
     Indication: Myasthenia gravis
     Dosage: UNK UNK, 1/WEEK
     Route: 042
     Dates: start: 2002, end: 2019
  2. MYCOPHENOLATE MOFETIL [Suspect]
     Active Substance: MYCOPHENOLATE MOFETIL
     Indication: Myasthenia gravis
     Dosage: UNK
     Route: 065
     Dates: start: 2002
  3. PYRIDOSTIGMINE BROMIDE [Suspect]
     Active Substance: PYRIDOSTIGMINE BROMIDE
     Indication: Myasthenia gravis
     Dosage: UNK
     Route: 065
     Dates: start: 2002
  4. HYDROXYCHLOROQUINE [Suspect]
     Active Substance: HYDROXYCHLOROQUINE
     Indication: Myasthenia gravis
     Dosage: UNK
     Route: 065
     Dates: start: 2015
  5. NIFEDIPINE [Suspect]
     Active Substance: NIFEDIPINE
     Indication: Myasthenia gravis
     Dosage: UNK
     Route: 065
  6. DAPSONE [Concomitant]
     Active Substance: DAPSONE
     Indication: Myasthenia gravis
     Dosage: UNK
     Route: 065
     Dates: start: 2017
  7. PREDNISONE [Concomitant]
     Active Substance: PREDNISONE
     Indication: Myasthenia gravis
     Dosage: 20 MILLIGRAM, QD
     Route: 065
     Dates: start: 2002

REACTIONS (2)
  - Drug ineffective [Unknown]
  - Off label use [Unknown]
